FAERS Safety Report 7658823-1 (Version None)
Quarter: 2011Q3

REPORT INFORMATION
  Report Type: 
  Country: None (occurrence: None)
  Receive Date: 20110802
  Receipt Date: 20110511
  Transmission Date: 20111222
  Serious: Yes (Hospitalization, Other)
  Sender: FDA-Public Use
  Company Number: 201110236

PATIENT
  Sex: Female

DRUGS (1)
  1. LIORESAL [Suspect]
     Indication: MUSCLE SPASTICITY
     Dosage: 1855 MCG, DAILY, INTRATHECAL
     Route: 037

REACTIONS (7)
  - DEVICE CONNECTION ISSUE [None]
  - POSTURING [None]
  - DYSTONIA [None]
  - DRUG EFFECT DECREASED [None]
  - PRURITUS [None]
  - HYPERTONIA [None]
  - DRUG WITHDRAWAL SYNDROME [None]
